FAERS Safety Report 26156971 (Version 2)
Quarter: 2025Q4

REPORT INFORMATION
  Report Type: Spontaneous
  Country: MX (occurrence: MX)
  Receive Date: 20251215
  Receipt Date: 20251222
  Transmission Date: 20260118
  Serious: Yes (Life-Threatening, Hospitalization, Other)
  Sender: TORRENT PHARMA INC.
  Company Number: MX-TORRENT-00000246

PATIENT
  Age: 17 Year
  Sex: Female

DRUGS (5)
  1. SERTRALINE [Interacting]
     Active Substance: SERTRALINE HYDROCHLORIDE
     Indication: Depression
     Dosage: INGESTED 1.4 G OF SERTRALINE
     Route: 048
  2. CLONAZEPAM [Interacting]
     Active Substance: CLONAZEPAM
     Indication: Product used for unknown indication
     Dosage: 25MG OF CLONAZEPAM
     Route: 048
  3. FENTANYL [Interacting]
     Active Substance: FENTANYL
     Indication: Product used for unknown indication
     Dosage: FENTANYL INFUSION
     Route: 065
  4. TRAMADOL [Interacting]
     Active Substance: TRAMADOL
     Indication: Product used for unknown indication
     Dosage: 2 G OF TRAMADOL
     Route: 048
  5. MIDAZOLAM [Concomitant]
     Active Substance: MIDAZOLAM
     Indication: Product used for unknown indication
     Dosage: UNKNOWN
     Route: 065

REACTIONS (4)
  - Serotonin syndrome [Recovering/Resolving]
  - Overdose [Recovered/Resolved]
  - Cardiac arrest [Recovered/Resolved]
  - Labelled drug-drug interaction issue [Recovered/Resolved]
